FAERS Safety Report 6442006-7 (Version None)
Quarter: 2009Q4

REPORT INFORMATION
  Report Type: 
  Country: None (occurrence: None)
  Receive Date: 20091116
  Receipt Date: 20091105
  Transmission Date: 20100525
  Serious: Yes (Hospitalization)
  Sender: FDA-Public Use
  Company Number: CL-PFIZER INC-2009295008

PATIENT
  Age: 30 Year
  Sex: Female

DRUGS (1)
  1. AZULFIDINE [Suspect]

REACTIONS (1)
  - NEUTROPENIA [None]
